FAERS Safety Report 23768566 (Version 1)
Quarter: 2024Q2

REPORT INFORMATION
  Report Type: Spontaneous
  Country: BE (occurrence: BE)
  Receive Date: 20240422
  Receipt Date: 20240422
  Transmission Date: 20240715
  Serious: Yes (Other)
  Sender: FDA-Public Use
  Company Number: None

PATIENT
  Age: 39 Year
  Sex: Male

DRUGS (8)
  1. OLANZAPINE [Suspect]
     Active Substance: OLANZAPINE
     Indication: Hallucination, auditory
     Dosage: ADMINISTRATED ONCE DAILY AT NIGHT.?DAILY DOSE: 10 MILLIGRAM
  2. OLANZAPINE [Suspect]
     Active Substance: OLANZAPINE
     Indication: Delusion
     Dosage: ADMINISTRATED ONCE DAILY AT NIGHT.?DAILY DOSE: 10 MILLIGRAM
  3. OLANZAPINE [Suspect]
     Active Substance: OLANZAPINE
     Indication: Hallucination, auditory
     Dosage: ADMINISTRATED ONCE DAILY AT NIGHT.?DAILY DOSE: 5 MILLIGRAM
  4. OLANZAPINE [Suspect]
     Active Substance: OLANZAPINE
     Indication: Delusion
     Dosage: ADMINISTRATED ONCE DAILY AT NIGHT.?DAILY DOSE: 5 MILLIGRAM
  5. LORMETAZEPAM [Suspect]
     Active Substance: LORMETAZEPAM
     Indication: Delusion
     Dosage: DAILY DOSE: 2 MILLIGRAM
  6. LORMETAZEPAM [Suspect]
     Active Substance: LORMETAZEPAM
     Indication: Hallucination, auditory
     Dosage: DAILY DOSE: 2 MILLIGRAM
  7. TRAZODONE [Suspect]
     Active Substance: TRAZODONE HYDROCHLORIDE
     Indication: Delusion
     Dosage: DAILY DOSE: 100 MILLIGRAM
  8. TRAZODONE [Suspect]
     Active Substance: TRAZODONE HYDROCHLORIDE
     Indication: Hallucination, auditory
     Dosage: DAILY DOSE: 100 MILLIGRAM

REACTIONS (5)
  - Respiratory failure [Unknown]
  - Pneumonia [Unknown]
  - Haemophilus infection [Unknown]
  - Coronavirus infection [Unknown]
  - Condition aggravated [Unknown]
